FAERS Safety Report 8124602-4 (Version None)
Quarter: 2012Q1

REPORT INFORMATION
  Report Type: 
  Country: None (occurrence: None)
  Receive Date: 20120209
  Receipt Date: 20120203
  Transmission Date: 20120608
  Serious: No
  Sender: FDA-Public Use
  Company Number: US-BAYER-2012-011451

PATIENT
  Sex: Female

DRUGS (1)
  1. YASMIN [Suspect]
     Dosage: UNK
     Route: 048
     Dates: end: 20120101

REACTIONS (5)
  - INSOMNIA [None]
  - HEADACHE [None]
  - NAUSEA [None]
  - ANXIETY [None]
  - WITHDRAWAL SYNDROME [None]
